FAERS Safety Report 9280842 (Version 1)
Quarter: 2013Q2

REPORT INFORMATION
  Report Type: Spontaneous
  Country: US (occurrence: None)
  Receive Date: 20130502
  Receipt Date: 20130502
  Transmission Date: 20140414
  Serious: Yes (Other)
  Sender: FDA-Public Use
  Company Number: DSU-2013-03088

PATIENT
  Age: 69 Year
  Sex: Female
  Weight: 50.8 kg

DRUGS (1)
  1. WELCHOL [Suspect]
     Indication: HYPERLIPIDAEMIA
     Dosage: 3750 MG (3750 MG, QD (SIX 625 MG TABLETS QD), PER ORAL
     Dates: start: 2003, end: 20130424

REACTIONS (2)
  - Dysphagia [None]
  - Hepatic cancer [None]
